FAERS Safety Report 15083281 (Version 1)
Quarter: 2018Q2

REPORT INFORMATION
  Report Type: Spontaneous
  Country: AR (occurrence: AR)
  Receive Date: 20180628
  Receipt Date: 20180628
  Transmission Date: 20180711
  Serious: Yes (Other)
  Sender: FDA-Public Use
  Company Number: AR-PFIZER INC-2018256332

PATIENT
  Age: 66 Year
  Sex: Female

DRUGS (1)
  1. LIPITOR [Suspect]
     Active Substance: ATORVASTATIN CALCIUM
     Indication: BLOOD CHOLESTEROL INCREASED
     Dosage: 20 MG, DAILY
     Dates: start: 20180618, end: 201806

REACTIONS (7)
  - Cough [Unknown]
  - Bronchitis [Unknown]
  - Hypersensitivity [Unknown]
  - Catarrh [Unknown]
  - Rhinorrhoea [Unknown]
  - Asphyxia [Unknown]
  - Sneezing [Unknown]

NARRATIVE: CASE EVENT DATE: 201806
